FAERS Safety Report 8718784 (Version 2)
Quarter: 2012Q4

REPORT INFORMATION
  Report Type: 
  Country: US (occurrence: US)
  Receive Date: 20120810
  Receipt Date: 20121003
  Transmission Date: 20130627
  Serious: No
  Sender: FDA-Public Use
  Company Number: US-009507513-1208USA003838

PATIENT

DRUGS (9)
  1. CLARITIN-D 24 HOUR [Suspect]
     Indication: UPPER RESPIRATORY TRACT CONGESTION
     Dosage: 10 mg, qam
     Route: 048
     Dates: start: 20120725, end: 20120810
  2. CLARITIN-D 24 HOUR [Suspect]
     Indication: MEDICAL OBSERVATION
  3. CLARITIN-D 24 HOUR [Suspect]
     Indication: EAR DISCOMFORT
  4. DILTIAZEM HYDROCHLORIDE [Concomitant]
     Indication: HYPERTENSION
     Dosage: UNK, Unknown
  5. BENAZEPRIL HYDROCHLORIDE [Concomitant]
     Indication: HYPERTENSION
     Dosage: 20 mg, qd
  6. OMEPRAZOLE [Concomitant]
     Indication: GASTROOESOPHAGEAL REFLUX DISEASE
     Dosage: 20 mg, bid
  7. PREVACID [Concomitant]
     Indication: PRODUCT USED FOR UNKNOWN INDICATION
     Dosage: 500 mg, bid
  8. TAMSULOSIN HYDROCHLORIDE [Concomitant]
     Indication: DIURETIC THERAPY
     Dosage: 4 mg, Unknown
  9. PROBENECID [Concomitant]
     Indication: GOUT
     Dosage: UNK, Unknown

REACTIONS (3)
  - Dry mouth [Not Recovered/Not Resolved]
  - Thirst [Not Recovered/Not Resolved]
  - Pollakiuria [Not Recovered/Not Resolved]
